FAERS Safety Report 11585544 (Version 1)
Quarter: 2015Q4

REPORT INFORMATION
  Report Type: Spontaneous
  Country: US (occurrence: US)
  Receive Date: 20151001
  Receipt Date: 20151001
  Transmission Date: 20160304
  Serious: Yes (Other)
  Sender: FDA-Public Use
  Company Number: US-B.I. PHARMACEUTICALS,INC./RIDGEFIELD-2015-BI-52400BP

PATIENT
  Age: 91 Year
  Sex: Female
  Weight: 56.25 kg

DRUGS (2)
  1. MIACALCIN [Concomitant]
     Active Substance: CALCITONIN SALMON
     Indication: BONE LOSS
     Dosage: 1 ANZ
     Route: 055
     Dates: start: 2007
  2. MICARDIS HCT [Suspect]
     Active Substance: HYDROCHLOROTHIAZIDE\TELMISARTAN
     Indication: HYPERTENSION
     Dosage: DOSE PER APPLICATION: 40MG/12.5 MG; DAILY DOSE: 40MG/12.5MG
     Route: 048
     Dates: start: 2010

REACTIONS (3)
  - Visual acuity reduced [Not Recovered/Not Resolved]
  - Blindness [Not Recovered/Not Resolved]
  - Headache [Not Recovered/Not Resolved]

NARRATIVE: CASE EVENT DATE: 2011
